FAERS Safety Report 13175872 (Version 1)
Quarter: 2017Q1

REPORT INFORMATION
  Report Type: Spontaneous
  Country: US (occurrence: US)
  Receive Date: 20170201
  Receipt Date: 20170201
  Transmission Date: 20170428
  Serious: Yes (Other)
  Sender: FDA-Public Use
  Company Number: US-AKORN PHARMACEUTICALS-2017AKN00081

PATIENT
  Age: 45 Year
  Sex: Male

DRUGS (6)
  1. ETHAMBUTOL [Concomitant]
     Active Substance: ETHAMBUTOL HYDROCHLORIDE
     Route: 065
  2. PYRIDOXINE [Concomitant]
     Active Substance: PYRIDOXINE
     Route: 065
  3. RIFAMPIN. [Suspect]
     Active Substance: RIFAMPIN
     Indication: DISSEMINATED TUBERCULOSIS
     Dosage: UNK
     Route: 065
  4. ISONIAZID. [Concomitant]
     Active Substance: ISONIAZID
     Route: 065
  5. PYRAZINAMIDE. [Suspect]
     Active Substance: PYRAZINAMIDE
     Indication: DISSEMINATED TUBERCULOSIS
     Dosage: UNK
     Route: 065
  6. RIFABUTIN. [Suspect]
     Active Substance: RIFABUTIN
     Indication: DISSEMINATED TUBERCULOSIS
     Dosage: 300 MG, 3X/WEEK
     Route: 065

REACTIONS (4)
  - Tubulointerstitial nephritis [Recovering/Resolving]
  - Renal necrosis [Recovering/Resolving]
  - Nephrosclerosis [Recovering/Resolving]
  - Granuloma [Recovering/Resolving]
